FAERS Safety Report 15877957 (Version 1)
Quarter: 2019Q1

REPORT INFORMATION
  Report Type: Other
  Country: US (occurrence: US)
  Receive Date: 20190128
  Receipt Date: 20190128
  Transmission Date: 20190417
  Serious: Yes (Other)
  Sender: FDA-Public Use
  Company Number: US-MSN LABORATORIES PRIVATE LIMITED-2061801

PATIENT
  Age: 45 Year
  Sex: Male

DRUGS (2)
  1. FLUOROQUINOLONE [Concomitant]
     Active Substance: UNSPECIFIED INGREDIENT
     Route: 061
  2. MOXIFLOXACIN HYDROCHLORIDE. [Suspect]
     Active Substance: MOXIFLOXACIN HYDROCHLORIDE
     Indication: ENDOPHTHALMITIS
     Route: 031

REACTIONS (2)
  - Ocular hypertension [Recovering/Resolving]
  - Iris transillumination defect [Recovering/Resolving]
